FAERS Safety Report 14378158 (Version 7)
Quarter: 2019Q1

REPORT INFORMATION
  Report Type: Spontaneous
  Country: BE (occurrence: BE)
  Receive Date: 20180111
  Receipt Date: 20190325
  Transmission Date: 20190417
  Serious: Yes (Death, Hospitalization)
  Sender: FDA-Public Use
  Company Number: BE-IPSEN BIOPHARMACEUTICALS, INC.-2018-00517

PATIENT
  Age: 66 Year
  Sex: Male
  Weight: 85 kg

DRUGS (13)
  1. SYMBICORT [Concomitant]
     Active Substance: BUDESONIDE\FORMOTEROL FUMARATE DIHYDRATE
     Dates: start: 2004
  2. BEVACIZUMAB. [Suspect]
     Active Substance: BEVACIZUMAB
     Indication: COLORECTAL CANCER METASTATIC
     Dosage: 5 MG/KG
     Route: 042
     Dates: start: 20170717
  3. IRINOTECAN LIPOSOME [Suspect]
     Active Substance: IRINOTECAN
     Indication: OFF LABEL USE
  4. AMLOR [Concomitant]
     Active Substance: AMLODIPINE BESYLATE
     Dates: start: 201701
  5. IRINOTECAN LIPOSOME [Suspect]
     Active Substance: IRINOTECAN
     Indication: COLORECTAL CANCER METASTATIC
     Dosage: NOT REPORTED
     Route: 042
     Dates: start: 20170717
  6. 5-FU [Suspect]
     Active Substance: FLUOROURACIL
     Indication: COLORECTAL CANCER METASTATIC
     Dosage: UNKNOWN
     Route: 042
     Dates: start: 20170717
  7. ZEFFIX [Concomitant]
     Active Substance: LAMIVUDINE
     Dates: start: 20170802
  8. LEUCOVORIN. [Suspect]
     Active Substance: LEUCOVORIN
     Indication: COLORECTAL CANCER METASTATIC
     Dosage: UNKNOWN
     Route: 042
     Dates: start: 20170717
  9. DAFALGAN [Concomitant]
     Active Substance: ACETAMINOPHEN
  10. CONTRAMAL [Concomitant]
     Active Substance: TRAMADOL HYDROCHLORIDE
     Dates: start: 20170906, end: 20170906
  11. AVAMYS [Concomitant]
     Active Substance: FLUTICASONE FUROATE
     Dates: start: 2004
  12. SPIRIVA [Concomitant]
     Active Substance: TIOTROPIUM BROMIDE MONOHYDRATE
     Dates: start: 2004
  13. AVASTIN [Suspect]
     Active Substance: BEVACIZUMAB
     Indication: COLORECTAL CANCER METASTATIC
     Dosage: UNKNOWN
     Route: 042
     Dates: start: 20170717

REACTIONS (5)
  - Musculoskeletal pain [Fatal]
  - Abdominal pain upper [Fatal]
  - Constipation [Fatal]
  - Off label use [Unknown]
  - Pain in extremity [Fatal]

NARRATIVE: CASE EVENT DATE: 20170810
